FAERS Safety Report 16764113 (Version 1)
Quarter: 2019Q3

REPORT INFORMATION
  Report Type: Spontaneous
  Country: US (occurrence: US)
  Receive Date: 20190712
  Receipt Date: 20190712
  Transmission Date: 20191005
  Serious: Yes (Hospitalization)
  Sender: FDA-Public Use
  Company Number: None

PATIENT
  Age: 64 Year
  Sex: Male

DRUGS (1)
  1. GLATIRAMER PFS INJ  (12/BOX) [Suspect]
     Active Substance: GLATIRAMER
     Dates: start: 20190124

REACTIONS (1)
  - Brain operation [None]

NARRATIVE: CASE EVENT DATE: 20190620
